FAERS Safety Report 7650675-9 (Version None)
Quarter: 2011Q3

REPORT INFORMATION
  Report Type: 
  Country: None (occurrence: None)
  Receive Date: 20110802
  Receipt Date: 20110726
  Transmission Date: 20111222
  Serious: Yes (Hospitalization)
  Sender: FDA-Public Use
  Company Number: US-US-EMD SERONO, INC.-7073670

PATIENT
  Sex: Male

DRUGS (1)
  1. REBIF [Suspect]
     Indication: MULTIPLE SCLEROSIS
     Route: 058
     Dates: start: 20090720

REACTIONS (5)
  - PNEUMONIA ASPIRATION [None]
  - HYPOAESTHESIA [None]
  - CONSTIPATION [None]
  - BLOOD GLUCOSE INCREASED [None]
  - BLADDER DILATATION [None]
